FAERS Safety Report 6609342-2 (Version None)
Quarter: 2010Q1

REPORT INFORMATION
  Report Type: 
  Country: None (occurrence: None)
  Receive Date: 20100302
  Receipt Date: 20100218
  Transmission Date: 20100710
  Serious: Yes (Hospitalization)
  Sender: FDA-Public Use
  Company Number: US-BIOGENIDEC-2010BI005606

PATIENT
  Age: 58 Year
  Sex: Female
  Weight: 59 kg

DRUGS (11)
  1. TYSABRI [Suspect]
     Indication: MULTIPLE SCLEROSIS
     Route: 042
     Dates: start: 20090914
  2. LITHIUM [Concomitant]
     Indication: BIPOLAR DISORDER
  3. LITHIUM [Concomitant]
  4. LAMICTAL [Concomitant]
     Indication: BIPOLAR DISORDER
  5. WELLBUTRIN [Concomitant]
     Indication: BIPOLAR DISORDER
  6. ABILIFY [Concomitant]
     Indication: BIPOLAR DISORDER
  7. CELEBREX [Concomitant]
     Indication: ARTHRITIS
  8. ALEVE (CAPLET) [Concomitant]
     Indication: ARTHRITIS
  9. FLOMAX [Concomitant]
     Indication: URINARY HESITATION
  10. ZOCOR [Concomitant]
     Indication: HYPERCHOLESTEROLAEMIA
  11. SINGULAIR [Concomitant]
     Indication: ASTHMA

REACTIONS (1)
  - HALLUCINATION [None]
